FAERS Safety Report 19127099 (Version 1)
Quarter: 2021Q2

REPORT INFORMATION
  Report Type: Spontaneous
  Country: CN (occurrence: CN)
  Receive Date: 20210412
  Receipt Date: 20210412
  Transmission Date: 20210717
  Serious: Yes (Hospitalization)
  Sender: FDA-Public Use
  Company Number: CN-BAXTER-2021BAX006757

PATIENT
  Age: 63 Year
  Sex: Male
  Weight: 55 kg

DRUGS (10)
  1. ENDOXAN [Suspect]
     Active Substance: CYCLOPHOSPHAMIDE
     Indication: DIFFUSE LARGE B-CELL LYMPHOMA STAGE IV
     Dosage: ENDOXAN 1.2 G + 0.9% SODIUM CHLORIDE 500 ML; OVER 3 HOURS
     Route: 041
     Dates: start: 20210219, end: 20210219
  2. 0.9% SODIUM CHLORIDE INJECTION [Suspect]
     Active Substance: SODIUM CHLORIDE
     Dosage: ENDOXAN 1.2 G + 0.9% SODIUM CHLORIDE 500 ML; OVER 3 HOURS
     Route: 041
     Dates: start: 20210219, end: 20210219
  3. PIRARUBICIN HYDROCHLORIDE [Suspect]
     Active Substance: PIRARUBICIN HYDROCHLORIDE
     Indication: DIFFUSE LARGE B-CELL LYMPHOMA STAGE IV
     Dosage: PIRARUBICIN HYDROCHLORIDE 80 MG + 5% GLUCOSE 250 ML
     Route: 041
     Dates: start: 20210219, end: 20210219
  4. HANLIKANG [Suspect]
     Active Substance: RITUXIMAB
     Dosage: HANLIKANG 500 MG + 0.9% SODIUM CHLORIDE 250 ML
     Route: 041
     Dates: start: 20210218, end: 20210218
  5. 0.9% SODIUM CHLORIDE INJECTION [Suspect]
     Active Substance: SODIUM CHLORIDE
     Dosage: HANLIKANG 500 MG + 0.9% SODIUM CHLORIDE 250 ML
     Route: 041
     Dates: start: 20210218, end: 20210218
  6. HANLIKANG [Suspect]
     Active Substance: RITUXIMAB
     Indication: DIFFUSE LARGE B-CELL LYMPHOMA STAGE IV
     Dosage: HANLIKANG 100 MG + 0.9% SODIUM CHLORIDE 100 ML
     Route: 041
     Dates: start: 20210218, end: 20210218
  7. 0.9% SODIUM CHLORIDE INJECTION [Suspect]
     Active Substance: SODIUM CHLORIDE
     Indication: MEDICATION DILUTION
     Dosage: HANLIKANG 100 MG + 0.9% SODIUM CHLORIDE 100 ML
     Route: 041
     Dates: start: 20210218, end: 20210218
  8. 0.9% SODIUM CHLORIDE INJECTION [Suspect]
     Active Substance: SODIUM CHLORIDE
     Dosage: VINCRISTINE SULFATE 2 MG + 0.9% SODIUM CHLORIDE 100 ML
     Route: 041
     Dates: start: 20210219, end: 20210219
  9. VINCRISTINE SULFATE. [Suspect]
     Active Substance: VINCRISTINE SULFATE
     Indication: DIFFUSE LARGE B-CELL LYMPHOMA STAGE IV
     Dosage: VINCRISTINE SULFATE 2 MG + 0.9% SODIUM CHLORIDE 100 ML
     Route: 041
     Dates: start: 20210219, end: 20210219
  10. 5% GLUCOSE  INJECTION [Suspect]
     Active Substance: DEXTROSE
     Indication: MEDICATION DILUTION
     Dosage: PIRARUBICIN HYDROCHLORIDE 80 MG + 5% GLUCOSE 250 ML
     Route: 041
     Dates: start: 20210219, end: 20210219

REACTIONS (1)
  - Myelosuppression [Recovering/Resolving]

NARRATIVE: CASE EVENT DATE: 20210302
